FAERS Safety Report 6576667-9 (Version None)
Quarter: 2010Q1

REPORT INFORMATION
  Report Type: 
  Country: None (occurrence: None)
  Receive Date: 20100210
  Receipt Date: 20100202
  Transmission Date: 20100710
  Serious: Yes (Other)
  Sender: FDA-Public Use
  Company Number: DK-SANOFI-AVENTIS-200917187GDDC

PATIENT
  Age: 53 Year
  Sex: Female
  Weight: 87.4 kg

DRUGS (7)
  1. DOCETAXEL [Suspect]
     Dosage: DOSE:40 MILLIGRAM(S)/MILLILITRE
     Route: 042
     Dates: start: 20071219, end: 20071219
  2. DOCETAXEL [Suspect]
     Dosage: DOSE:40 MILLIGRAM(S)/MILLILITRE
     Route: 042
     Dates: start: 20071127, end: 20071127
  3. DOCETAXEL [Suspect]
     Dosage: DOSE:40 MILLIGRAM(S)/MILLILITRE
     Route: 042
     Dates: start: 20071107, end: 20071107
  4. PREDNISOLONE [Concomitant]
     Dates: start: 20071218, end: 20071220
  5. PREDNISOLONE [Concomitant]
     Dates: start: 20071126, end: 20071128
  6. PREDNISOLONE [Concomitant]
     Dates: start: 20071106, end: 20071108
  7. DIFLUCAN [Concomitant]
     Dates: start: 20071126, end: 20071202

REACTIONS (1)
  - TYPE 2 DIABETES MELLITUS [None]
